FAERS Safety Report 5445318-9 (Version None)
Quarter: 2007Q3

REPORT INFORMATION
  Report Type: 
  Country: None (occurrence: None)
  Receive Date: 20070906
  Receipt Date: 20070426
  Transmission Date: 20080115
  Serious: No
  Sender: FDA-Public Use
  Company Number: A0648895A

PATIENT
  Age: 46 Year
  Sex: Female

DRUGS (2)
  1. REQUIP [Suspect]
     Indication: RESTLESS LEGS SYNDROME
     Route: 048
     Dates: start: 20070201, end: 20070201
  2. ANTIHYPERTENSIVE [Concomitant]

REACTIONS (3)
  - FEELING ABNORMAL [None]
  - NERVOUSNESS [None]
  - PHARMACEUTICAL PRODUCT COMPLAINT [None]
